FAERS Safety Report 6519912-8 (Version None)
Quarter: 2009Q4

REPORT INFORMATION
  Report Type: 
  Country: None (occurrence: None)
  Receive Date: 20091229
  Receipt Date: 20091217
  Transmission Date: 20100525
  Serious: Yes (Hospitalization)
  Sender: FDA-Public Use
  Company Number: US-BIOGENIDEC-2009BI038398

PATIENT
  Age: 51 Year
  Sex: Female

DRUGS (9)
  1. TYSABRI [Suspect]
     Indication: MULTIPLE SCLEROSIS
     Route: 042
     Dates: start: 20080501
  2. TRIAMTERENE AND HYDROCHLOROTHIAZIDE [Concomitant]
  3. SIMVASTATIN [Concomitant]
  4. NEURONTIN [Concomitant]
  5. METFORMIN [Concomitant]
  6. LIDEX [Concomitant]
  7. LACTULOSE [Concomitant]
  8. LABETALOL HCL [Concomitant]
  9. AMITRIPTYLINE [Concomitant]

REACTIONS (26)
  - BALANCE DISORDER [None]
  - BLINDNESS UNILATERAL [None]
  - BLOOD PRESSURE INCREASED [None]
  - DEPRESSION [None]
  - DYSKINESIA [None]
  - DYSPNOEA [None]
  - EYE PAIN [None]
  - FALL [None]
  - FATIGUE [None]
  - FOOT FRACTURE [None]
  - HEADACHE [None]
  - HEARING IMPAIRED [None]
  - ILLUSION [None]
  - INCORRECT DRUG ADMINISTRATION RATE [None]
  - MALAISE [None]
  - NECK PAIN [None]
  - NUCLEAR MAGNETIC RESONANCE IMAGING ABNORMAL [None]
  - ORAL INFECTION [None]
  - PAIN [None]
  - PAIN IN EXTREMITY [None]
  - PLASMAPHERESIS [None]
  - SKIN BURNING SENSATION [None]
  - SKIN INFECTION [None]
  - TREMOR [None]
  - VERTEBRAL COLUMN MASS [None]
  - WRIST FRACTURE [None]
